FAERS Safety Report 9537440 (Version 1)
Quarter: 2013Q3

REPORT INFORMATION
  Report Type: Spontaneous
  Country: US (occurrence: US)
  Receive Date: 20130919
  Receipt Date: 20130919
  Transmission Date: 20140515
  Serious: No
  Sender: FDA-Public Use
  Company Number: US-B.I. PHARMACEUTICALS,INC./RIDGEFIELD-2013-BI-28606BP

PATIENT
  Age: 71 Year
  Sex: Female

DRUGS (3)
  1. PRADAXA [Suspect]
     Dates: start: 2012
  2. ZOCOR [Concomitant]
  3. METFORMIN [Concomitant]

REACTIONS (3)
  - Contusion [Unknown]
  - Contusion [Unknown]
  - Fall [Recovered/Resolved]
